FAERS Safety Report 20966505 (Version 1)
Quarter: 2022Q2

REPORT INFORMATION
  Report Type: Spontaneous
  Country: US (occurrence: None)
  Receive Date: 20220615
  Receipt Date: 20220615
  Transmission Date: 20220720
  Serious: Yes (Hospitalization)
  Sender: FDA-Public Use
  Company Number: None

PATIENT
  Age: 45 Year
  Sex: Male
  Weight: 67 kg

DRUGS (6)
  1. METFORMIN [Suspect]
     Active Substance: METFORMIN HYDROCHLORIDE
     Indication: Type 2 diabetes mellitus
     Dosage: FREQUENCY : TWICE A DAY;?
     Route: 048
     Dates: start: 20130107, end: 20220520
  2. ASPIRIN [Concomitant]
     Active Substance: ASPIRIN
     Dates: start: 20211102
  3. Atorvastatin 80mg daily [Concomitant]
     Dates: start: 20210322
  4. Cetirizine 10mg daily [Concomitant]
     Dates: start: 20220322
  5. lisinopril 10mg daily [Concomitant]
     Dates: start: 20211115, end: 20220520
  6. Sitagliptin 100mg tablet daily [Concomitant]
     Dates: start: 20220322

REACTIONS (12)
  - Lactic acidosis [None]
  - Haemodialysis [None]
  - Nausea [None]
  - Vomiting [None]
  - Diarrhoea [None]
  - Acute kidney injury [None]
  - Hyperkalaemia [None]
  - Metabolic acidosis [None]
  - Diabetic ketoacidosis [None]
  - Dialysis [None]
  - Renal tubular necrosis [None]
  - Polyuria [None]

NARRATIVE: CASE EVENT DATE: 20220512
